FAERS Safety Report 9301439 (Version 1)
Quarter: 2013Q2

REPORT INFORMATION
  Report Type: Spontaneous
  Country: US (occurrence: None)
  Receive Date: 20130520
  Receipt Date: 20130520
  Transmission Date: 20140414
  Serious: Yes (Other)
  Sender: FDA-Public Use
  Company Number: None

PATIENT
  Sex: Female
  Weight: 76.71 kg

DRUGS (2)
  1. LEVOTHYROXINE [Suspect]
     Indication: HYPOTHYROIDISM
     Route: 048
     Dates: start: 20101110
  2. LEVOTHYROXINE [Suspect]
     Route: 048
     Dates: start: 20110216

REACTIONS (3)
  - Alopecia [None]
  - Nail disorder [None]
  - Weight increased [None]
